FAERS Safety Report 7818118-X (Version None)
Quarter: 2011Q4

REPORT INFORMATION
  Report Type: 
  Country: None (occurrence: None)
  Receive Date: 20111017
  Receipt Date: 20111006
  Transmission Date: 20120403
  Serious: No
  Sender: FDA-Public Use
  Company Number: US-B.I. PHARMACEUTICALS,INC./RIDGEFIELD-2011-BP-23691BP

PATIENT
  Age: 51 Year
  Sex: Female

DRUGS (6)
  1. LORTAB [Concomitant]
     Indication: BACK PAIN
  2. VENTOLIN [Concomitant]
     Indication: DYSPNOEA
  3. LORTAB [Concomitant]
     Indication: NECK PAIN
  4. SPIRIVA [Suspect]
     Indication: CHRONIC OBSTRUCTIVE PULMONARY DISEASE
     Dosage: 18 MCG
     Route: 055
     Dates: start: 20110901
  5. AZITHROMYCIN [Concomitant]
     Indication: BRONCHITIS
     Dosage: 500 MG
  6. SPIRIVA [Suspect]
     Indication: BRONCHITIS

REACTIONS (4)
  - OROPHARYNGEAL PAIN [None]
  - TONSILLAR HYPERTROPHY [None]
  - GLOSSITIS [None]
  - ORAL DISCOMFORT [None]
